FAERS Safety Report 4916091-5 (Version None)
Quarter: 2006Q1

REPORT INFORMATION
  Report Type: 
  Country: None (occurrence: None)
  Receive Date: 20060214
  Receipt Date: 20060123
  Transmission Date: 20060701
  Serious: Yes (Hospitalization, Other)
  Sender: FDA-Public Use
  Company Number: US_0509121773

PATIENT
  Age: 45 Year
  Sex: Female
  Weight: 63.5 kg

DRUGS (1)
  1. ZYPREXA [Suspect]
     Indication: MENTAL DISORDER
     Dosage: 10 MG, DAILY (1/D), ORAL
     Route: 048

REACTIONS (13)
  - BACK PAIN [None]
  - CONSTIPATION [None]
  - CYST [None]
  - GALLBLADDER DISORDER [None]
  - HYPERPHAGIA [None]
  - HYSTERECTOMY [None]
  - LETHARGY [None]
  - PANCREATIC CYST [None]
  - PANCREATITIS [None]
  - POLYDIPSIA [None]
  - POLYURIA [None]
  - VISION BLURRED [None]
  - WEIGHT DECREASED [None]
